FAERS Safety Report 17874543 (Version 1)
Quarter: 2020Q2

REPORT INFORMATION
  Report Type: Spontaneous
  Country: US (occurrence: US)
  Receive Date: 20200609
  Receipt Date: 20200609
  Transmission Date: 20200714
  Serious: Yes (Other)
  Sender: FDA-Public Use
  Company Number: US-AEGERION PHARMACEUTICAL, INC-AEGR004871

PATIENT
  Sex: Male
  Weight: 102.49 kg

DRUGS (1)
  1. JUXTAPID [Suspect]
     Active Substance: LOMITAPIDE MESYLATE
     Indication: TYPE IIA HYPERLIPIDAEMIA
     Dosage: 5 MG, QD AT BEDTIME
     Route: 048

REACTIONS (4)
  - Myocardial infarction [Unknown]
  - Cerebrovascular accident [Unknown]
  - Adverse drug reaction [Unknown]
  - Therapy cessation [Unknown]
